FAERS Safety Report 25797999 (Version 2)
Quarter: 2025Q3

REPORT INFORMATION
  Report Type: Spontaneous
  Country: GB (occurrence: GB)
  Receive Date: 20250912
  Receipt Date: 20250925
  Transmission Date: 20251021
  Serious: Yes (Other)
  Sender: GALPHARM INTERNATIONAL
  Company Number: None

PATIENT
  Age: 60 Year
  Sex: Female
  Weight: 121 kg

DRUGS (3)
  1. NAPROXEN [Suspect]
     Active Substance: NAPROXEN
     Indication: Analgesic therapy
     Dosage: 1 DOSAGE FORM, BID/  ONE TO BE TAKEN TWICE A DAY
     Route: 065
     Dates: start: 20250801, end: 20250901
  2. IBUPROFEN [Suspect]
     Active Substance: IBUPROFEN
     Indication: Arthralgia
     Dosage: 1 DOSAGE FORM, TID (TAKE ONE TABLET THREE TIMES A DAY PAIN RELEIEF FOR KNEE AS ALTERNATIVE TO NAPROX
     Route: 065
     Dates: start: 20250901
  3. DICLOFENAC DIETHYLAMINE [Concomitant]
     Active Substance: DICLOFENAC DIETHYLAMINE
     Indication: Product used for unknown indication
     Route: 065
     Dates: start: 20250901

REACTIONS (4)
  - Abdominal discomfort [Unknown]
  - Rectal haemorrhage [Unknown]
  - Haematochezia [Unknown]
  - Abdominal pain upper [Unknown]

NARRATIVE: CASE EVENT DATE: 20250101
